FAERS Safety Report 14498523 (Version 1)
Quarter: 2018Q1

REPORT INFORMATION
  Report Type: Spontaneous
  Country: RU (occurrence: RU)
  Receive Date: 20180207
  Receipt Date: 20180207
  Transmission Date: 20180509
  Serious: Yes (Hospitalization, Other)
  Sender: FDA-Public Use
  Company Number: RU-ASTRAZENECA-2018SE14267

PATIENT
  Age: 63 Year
  Sex: Female
  Weight: 122 kg

DRUGS (3)
  1. ATORVASTATIN [Concomitant]
     Active Substance: ATORVASTATIN
  2. CARDIOMAGNYL [Concomitant]
     Active Substance: ASPIRIN\MAGNESIUM HYDROXIDE
  3. BRILINTA [Suspect]
     Active Substance: TICAGRELOR
     Indication: MYOCARDIAL INFARCTION
     Route: 048
     Dates: start: 201711, end: 20180101

REACTIONS (2)
  - Arrhythmia [Recovered/Resolved]
  - Vascular stent thrombosis [Unknown]

NARRATIVE: CASE EVENT DATE: 20180101
